FAERS Safety Report 5288541-9 (Version None)
Quarter: 2007Q2

REPORT INFORMATION
  Report Type: 
  Country: None (occurrence: None)
  Receive Date: 20070405
  Receipt Date: 20070301
  Transmission Date: 20071010
  Serious: No
  Sender: FDA-Public Use
  Company Number: US-JNJFOC-20070300970

PATIENT
  Age: 44 Year
  Sex: Female

DRUGS (5)
  1. INVEGA [Suspect]
     Indication: BIPOLAR DISORDER
     Route: 048
  2. TOPAMAX [Suspect]
     Indication: DRUG USE FOR UNKNOWN INDICATION
     Route: 048
  3. LEXAPRO [Concomitant]
     Indication: BIPOLAR DISORDER
     Route: 048
  4. LUNESTA [Concomitant]
     Indication: SLEEP DISORDER
     Route: 048
  5. WELLBUTRIN XL [Concomitant]
     Indication: BIPOLAR DISORDER
     Route: 048

REACTIONS (1)
  - GALACTORRHOEA [None]
